FAERS Safety Report 24815264 (Version 2)
Quarter: 2025Q2

REPORT INFORMATION
  Report Type: Report from Study
  Country: GB (occurrence: GB)
  Receive Date: 20250107
  Receipt Date: 20250408
  Transmission Date: 20250717
  Serious: Yes (Other)
  Sender: NOVARTIS
  Company Number: GB-002147023-NVSC2024GB142180

PATIENT
  Age: 53 Year
  Sex: Male

DRUGS (2)
  1. KESIMPTA [Suspect]
     Active Substance: OFATUMUMAB
     Indication: Relapsing-remitting multiple sclerosis
     Dosage: 20 MG, QW
     Route: 058
     Dates: start: 20240705
  2. KESIMPTA [Suspect]
     Active Substance: OFATUMUMAB
     Dosage: 20 MG, QMO
     Route: 058

REACTIONS (8)
  - Lower respiratory tract infection [Not Recovered/Not Resolved]
  - Productive cough [Unknown]
  - Chills [Recovered/Resolved]
  - Fatigue [Recovered/Resolved]
  - Feeling of body temperature change [Recovered/Resolved]
  - Upper respiratory tract infection [Unknown]
  - Fatigue [Not Recovered/Not Resolved]
  - Sluggishness [Not Recovered/Not Resolved]

NARRATIVE: CASE EVENT DATE: 20240705
